FAERS Safety Report 4713302-6 (Version None)
Quarter: 2005Q3

REPORT INFORMATION
  Report Type: 
  Country: None (occurrence: None)
  Receive Date: 20050713
  Receipt Date: 20050526
  Transmission Date: 20060218
  Serious: Yes (Life-Threatening, Hospitalization)
  Sender: FDA-Public Use
  Company Number: CA-GLAXOSMITHKLINE-A0560267A

PATIENT
  Age: 66 Year
  Sex: Female

DRUGS (6)
  1. AVANDIA [Suspect]
     Route: 048
     Dates: start: 20020107, end: 20030819
  2. DIABETA [Concomitant]
     Dosage: 10MG TWICE PER DAY
  3. GLUCOPHAGE [Concomitant]
     Dosage: 850MG THREE TIMES PER DAY
  4. MONOPRIL [Concomitant]
     Indication: HYPERTENSION
     Dosage: 20MG PER DAY
  5. LIPITOR [Concomitant]
     Dosage: 1TAB AT NIGHT
  6. NOVASEN [Concomitant]
     Dosage: 375MG PER DAY

REACTIONS (9)
  - CARDIAC FAILURE [None]
  - COR PULMONALE [None]
  - DYSPNOEA PAROXYSMAL NOCTURNAL [None]
  - EXERCISE TOLERANCE DECREASED [None]
  - FATIGUE [None]
  - OEDEMA [None]
  - OEDEMA PERIPHERAL [None]
  - ORTHOPNOEA [None]
  - WEIGHT INCREASED [None]
